FAERS Safety Report 24860316 (Version 1)
Quarter: 2025Q1

REPORT INFORMATION
  Report Type: Spontaneous
  Country: US (occurrence: US)
  Receive Date: 20250120
  Receipt Date: 20250120
  Transmission Date: 20250408
  Serious: No
  Sender: STRIDES
  Company Number: US-STRIDES ARCOLAB LIMITED-2024SP006552

PATIENT
  Age: 67 Year
  Sex: Female

DRUGS (7)
  1. METHOTREXATE [Suspect]
     Active Substance: METHOTREXATE
     Indication: Lichen sclerosus
     Route: 065
  2. HYDROXYCHLOROQUINE [Concomitant]
     Active Substance: HYDROXYCHLOROQUINE
     Indication: Lichen sclerosus
     Route: 048
  3. HYDROXYCHLOROQUINE [Concomitant]
     Active Substance: HYDROXYCHLOROQUINE
     Route: 048
  4. TACROLIMUS [Concomitant]
     Active Substance: TACROLIMUS
     Indication: Lichen sclerosus
     Route: 065
  5. TRIAMCINOLONE [Concomitant]
     Active Substance: TRIAMCINOLONE
     Indication: Lichen sclerosus
     Route: 026
  6. HALOBETASOL [Concomitant]
     Active Substance: HALOBETASOL
     Indication: Lichen sclerosus
     Route: 061
  7. FOLIC ACID [Concomitant]
     Active Substance: FOLIC ACID
     Indication: Lichen sclerosus
     Route: 065

REACTIONS (1)
  - Off label use [Unknown]
